FAERS Safety Report 4603236-X (Version None)
Quarter: 2005Q1

REPORT INFORMATION
  Report Type: 
  Country: None (occurrence: None)
  Receive Date: 20050308
  Receipt Date: 20050204
  Transmission Date: 20050727
  Serious: Yes (Hospitalization, Other)
  Sender: FDA-Public Use
  Company Number: 2005UW03290

PATIENT
  Sex: Female

DRUGS (2)
  1. SEROQUEL [Suspect]
     Dosage: 200-400 MG
  2. METFORMIN HCL [Concomitant]

REACTIONS (3)
  - ACCIDENTAL EXPOSURE [None]
  - HYPOTENSION [None]
  - MEDICATION ERROR [None]
